FAERS Safety Report 24332297 (Version 1)
Quarter: 2024Q3

REPORT INFORMATION
  Report Type: Spontaneous
  Country: ES (occurrence: ES)
  Receive Date: 20240918
  Receipt Date: 20240918
  Transmission Date: 20241017
  Serious: Yes (Death, Other)
  Sender: AUROBINDO
  Company Number: ES-AUROBINDO-AUR-APL-2016-11937

PATIENT
  Age: 16 Year
  Sex: Female

DRUGS (26)
  1. CISPLATIN [Suspect]
     Active Substance: CISPLATIN
     Indication: Adrenocortical carcinoma
     Dosage: 50 MILLIGRAM/SQ. METER
     Route: 065
  2. CISPLATIN [Suspect]
     Active Substance: CISPLATIN
     Indication: Hyperadrenocorticism
     Dosage: 100 MILLIGRAM/SQ. METER
     Route: 065
  3. CISPLATIN [Suspect]
     Active Substance: CISPLATIN
     Dosage: 50 MILLIGRAM/SQ. METER
     Route: 065
  4. CAPECITABINE [Suspect]
     Active Substance: CAPECITABINE
     Indication: Adrenocortical carcinoma
     Dosage: 800 MILLIGRAM
     Route: 065
  5. DOXORUBICIN [Suspect]
     Active Substance: DOXORUBICIN
     Indication: Adrenocortical carcinoma
     Dosage: 50 MILLIGRAM/SQ. METER
     Route: 065
  6. DOXORUBICIN [Suspect]
     Active Substance: DOXORUBICIN
     Indication: Hyperadrenocorticism
     Dosage: 20 MILLIGRAM/SQ. METER
     Route: 065
  7. GEMCITABINE [Suspect]
     Active Substance: GEMCITABINE
     Indication: Adrenocortical carcinoma
     Dosage: 800 MILLIGRAM/SQ. METER
     Route: 065
  8. GEMCITABINE [Suspect]
     Active Substance: GEMCITABINE
     Dosage: 800 MILLIGRAM/SQ. METER
     Route: 065
  9. MITOTANE [Suspect]
     Active Substance: MITOTANE
     Indication: Adrenocortical carcinoma
     Dosage: 500 MILLIGRAM, TWO TIMES A DAY
     Route: 065
  10. MITOTANE [Suspect]
     Active Substance: MITOTANE
     Dosage: 7 GRAM, DAILY
     Route: 065
  11. MITOTANE [Suspect]
     Active Substance: MITOTANE
     Dosage: 3 GRAM, DAILY
     Route: 065
  12. HYDROCORTISONE [Suspect]
     Active Substance: HYDROCORTISONE\HYDROCORTISONE ACETATE
     Indication: Adrenocortical carcinoma
     Dosage: 50 MILLIGRAM, DAILY
     Route: 065
  13. IFOSFAMIDE [Suspect]
     Active Substance: IFOSFAMIDE
     Indication: Adrenocortical carcinoma
     Dosage: 2000 MG/M2, UNK
     Route: 065
  14. IFOSFAMIDE [Suspect]
     Active Substance: IFOSFAMIDE
     Indication: Hyperadrenocorticism
  15. ETOPOSIDE [Suspect]
     Active Substance: ETOPOSIDE
     Indication: Adrenocortical carcinoma
     Dosage: 100 MILLIGRAM/SQ. METER
     Route: 065
  16. ETOPOSIDE [Suspect]
     Active Substance: ETOPOSIDE
     Indication: Hyperadrenocorticism
  17. FILGRASTIM [Suspect]
     Active Substance: FILGRASTIM
     Indication: Adrenocortical carcinoma
     Dosage: 300 MCG, UNK
     Route: 065
  18. KETOCONAZOLE [Suspect]
     Active Substance: KETOCONAZOLE
     Indication: Hyperadrenocorticism
     Dosage: UNK
     Route: 065
  19. KETOCONAZOLE [Suspect]
     Active Substance: KETOCONAZOLE
     Indication: Adrenocortical carcinoma
  20. MESNA [Suspect]
     Active Substance: MESNA
     Indication: Adrenocortical carcinoma
     Dosage: UNK
     Route: 065
  21. MESNA [Suspect]
     Active Substance: MESNA
     Indication: Hyperadrenocorticism
  22. SORAFENIB [Suspect]
     Active Substance: SORAFENIB
     Indication: Hyperadrenocorticism
     Dosage: UNK
     Route: 065
  23. SORAFENIB [Suspect]
     Active Substance: SORAFENIB
     Indication: Adrenocortical carcinoma
  24. BEVACIZUMAB [Suspect]
     Active Substance: BEVACIZUMAB
     Indication: Adrenocortical carcinoma
     Dosage: UNK
     Route: 065
  25. BEVACIZUMAB [Suspect]
     Active Substance: BEVACIZUMAB
     Indication: Hyperadrenocorticism
  26. PACLITAXEL [Concomitant]
     Active Substance: PACLITAXEL
     Indication: Product used for unknown indication
     Dosage: UNK
     Route: 065

REACTIONS (16)
  - Cystitis haemorrhagic [Fatal]
  - Gastroenteritis [Fatal]
  - Mucosal inflammation [Fatal]
  - Pyrexia [Fatal]
  - Pneumonia [Fatal]
  - Death [Fatal]
  - Hepatotoxicity [Unknown]
  - Pancytopenia [Unknown]
  - Hypercholesterolaemia [Unknown]
  - Dermatitis exfoliative [Unknown]
  - Blood creatinine abnormal [Unknown]
  - Cortisol free urine abnormal [Unknown]
  - Diarrhoea [Unknown]
  - General physical health deterioration [Unknown]
  - Hyperadrenocorticism [Unknown]
  - Off label use [Unknown]
